FAERS Safety Report 6071846-1 (Version None)
Quarter: 2009Q1

REPORT INFORMATION
  Report Type: 
  Country: None (occurrence: None)
  Receive Date: 20090205
  Receipt Date: 20090120
  Transmission Date: 20090719
  Serious: Yes (Other)
  Sender: FDA-Public Use
  Company Number: 2009S1001088

PATIENT
  Age: 89 Year
  Sex: Female
  Weight: 54 kg

DRUGS (15)
  1. ALENDRONIC ACID (ALENDRONIC ACID) [Suspect]
     Indication: DRUG USE FOR UNKNOWN INDICATION
     Dosage: 1 DF;WEEKLY
  2. AMOXICILLIN [Concomitant]
  3. BENDROFLUMETHIAZIDE [Concomitant]
  4. BETAMETHASONE VALERATE [Concomitant]
  5. CALCICHEW /00108001/ [Concomitant]
  6. GAVISCON [Concomitant]
  7. HYDROXYZINE HYDROCHLORIDE [Concomitant]
  8. LORATADINE [Concomitant]
  9. PREDNISOLONE [Concomitant]
  10. SALBUTAMOL [Concomitant]
  11. SLO-PHYLLIN [Concomitant]
  12. SYMBICORT [Concomitant]
  13. TIOTROPIUM BROMIDE [Concomitant]
  14. TRAMADOL HYDROCHLORIDE [Concomitant]
  15. VENTOLIN [Concomitant]

REACTIONS (2)
  - LIP SWELLING [None]
  - PAIN [None]
